FAERS Safety Report 13565616 (Version 1)
Quarter: 2017Q2

REPORT INFORMATION
  Report Type: Spontaneous
  Country: US (occurrence: US)
  Receive Date: 20170519
  Receipt Date: 20170519
  Transmission Date: 20170830
  Serious: No
  Sender: FDA-Public Use
  Company Number: US-BION-20160391

PATIENT
  Age: 3 Year
  Sex: Male
  Weight: 15.88 kg

DRUGS (1)
  1. MOTRIN IB [Suspect]
     Active Substance: IBUPROFEN
     Dosage: 2-3 DF TAKEN ONLY ONCE
     Route: 048
     Dates: start: 20160811, end: 20160811

REACTIONS (1)
  - Accidental exposure to product by child [Unknown]

NARRATIVE: CASE EVENT DATE: 20160811
